FAERS Safety Report 8406474 (Version 3)
Quarter: 2013Q1

REPORT INFORMATION
  Report Type: Report from Study
  Country: DE (occurrence: DE)
  Receive Date: 20120215
  Receipt Date: 20130218
  Transmission Date: 20140127
  Serious: Yes (Hospitalization)
  Sender: FDA-Public Use
  Company Number: DE-MILLENNIUM PHARMACEUTICALS, INC.-2011-03283

PATIENT
  Age: 63 Year
  Sex: Male
  Weight: 61 kg

DRUGS (5)
  1. VELCADE [Suspect]
     Indication: PLASMA CELL MYELOMA
     Dosage: 2.07 MG, UNK
     Dates: start: 20110405, end: 20110617
  2. PAMIDRONATE [Concomitant]
     Indication: PLASMA CELL MYELOMA
     Dosage: UNK
     Dates: start: 20110412
  3. DOXORUBICIN [Concomitant]
     Indication: PLASMA CELL MYELOMA
     Dosage: 9 MG/M2, UNK
     Dates: start: 20110405, end: 20110617
  4. DEXAMETHASONE [Concomitant]
     Indication: PLASMA CELL MYELOMA
     Dosage: 20 MG, UNK
     Dates: start: 20110405, end: 20110617
  5. CYCLOPHOSPHAMIDE [Concomitant]
     Indication: PLASMA CELL MYELOMA

REACTIONS (3)
  - Coxsackie viral infection [Recovered/Resolved]
  - Pleuritic pain [Recovered/Resolved]
  - Pulmonary embolism [Recovered/Resolved]
